FAERS Safety Report 14219595 (Version 1)
Quarter: 2017Q4

REPORT INFORMATION
  Report Type: Report from Study
  Country: US (occurrence: US)
  Receive Date: 20171123
  Receipt Date: 20171123
  Transmission Date: 20180321
  Serious: Yes (Death)
  Sender: FDA-Public Use
  Company Number: US-ROCHE-2030401

PATIENT
  Age: 72 Year

DRUGS (1)
  1. ALTEPLASE. [Suspect]
     Active Substance: ALTEPLASE
     Indication: ISCHAEMIC STROKE
     Dosage: 10% OF WHICH WAS GIVEN AS A BOLUS IN THE FIRST MINUTE FOLLOWED BY DELIVERY OF THE REMAINING 90% AS A
     Route: 042

REACTIONS (1)
  - Haemorrhagic cerebral infarction [Fatal]
